FAERS Safety Report 4480495-8 (Version None)
Quarter: 2004Q4

REPORT INFORMATION
  Report Type: 
  Country: None (occurrence: None)
  Receive Date: 20041018
  Receipt Date: 20041005
  Transmission Date: 20050328
  Serious: Yes (Life-Threatening)
  Sender: FDA-Public Use
  Company Number: 2004-04331

PATIENT
  Age: 50 Year
  Sex: Male

DRUGS (6)
  1. FAMOTIDINE [Suspect]
     Dosage: 20 MG, Q12H, INTRAVENOUS
     Route: 042
  2. AMIODARONE HCL [Concomitant]
  3. DOPAMINE HCL [Concomitant]
  4. EPINEPHRINE [Concomitant]
  5. FENTANYL [Concomitant]
  6. CEFAZOLIN [Concomitant]

REACTIONS (3)
  - CONDITION AGGRAVATED [None]
  - ELECTROCARDIOGRAM QT PROLONGED [None]
  - TORSADE DE POINTES [None]
